FAERS Safety Report 7919836-5 (Version None)
Quarter: 2011Q4

REPORT INFORMATION
  Report Type: 
  Country: None (occurrence: None)
  Receive Date: 20111117
  Receipt Date: 20111117
  Transmission Date: 20120403
  Serious: Yes (Other)
  Sender: FDA-Public Use
  Company Number: None

PATIENT
  Age: 40 Year
  Sex: Male
  Weight: 77.11 kg

DRUGS (2)
  1. SEROQUEL [Concomitant]
     Indication: BIPOLAR DISORDER
     Dosage: 50 MG
     Route: 048
     Dates: start: 20110901, end: 20111105
  2. SEROQUEL [Suspect]
     Indication: DEPRESSION
     Dosage: 200 MG
     Route: 048
     Dates: start: 20110901, end: 20111116

REACTIONS (4)
  - BRUXISM [None]
  - MASS [None]
  - BONE DISORDER [None]
  - LYMPHADENOPATHY [None]
